FAERS Safety Report 4895057-8 (Version None)
Quarter: 2006Q1

REPORT INFORMATION
  Report Type: 
  Country: None (occurrence: None)
  Receive Date: 20060130
  Receipt Date: 20060119
  Transmission Date: 20060701
  Serious: Yes (Hospitalization)
  Sender: FDA-Public Use
  Company Number: PHRM2006FR00565

PATIENT
  Age: 80 Year
  Sex: Male

DRUGS (10)
  1. MIXTARD HUMAN 70/30 [Concomitant]
     Dates: end: 20051124
  2. LESCOL [Suspect]
     Route: 048
     Dates: end: 20051124
  3. INIPOMP [Suspect]
     Dosage: UNK, UNK
     Route: 048
     Dates: end: 20051216
  4. VERAPAMIL [Suspect]
     Route: 048
  5. KARDEGIC [Suspect]
     Route: 048
  6. NEURONTIN [Suspect]
     Route: 048
  7. ALDALIX [Suspect]
     Dosage: UNK, UNK
     Route: 048
     Dates: end: 20051129
  8. DAIVOBET [Concomitant]
     Indication: PSORIASIS
  9. EMOLLIENTS AND PROTECTIVES [Concomitant]
  10. PUVA [Concomitant]

REACTIONS (9)
  - DEHYDRATION [None]
  - EPIDERMAL NECROSIS [None]
  - ERYTHRODERMIC PSORIASIS [None]
  - FACE OEDEMA [None]
  - GENERAL PHYSICAL HEALTH DETERIORATION [None]
  - OEDEMA PERIPHERAL [None]
  - PYREXIA [None]
  - SKIN FISSURES [None]
  - SKIN ULCER [None]
